FAERS Safety Report 9812757 (Version 2)
Quarter: 2014Q1

REPORT INFORMATION
  Report Type: Spontaneous
  Country: IT (occurrence: IT)
  Receive Date: 20140113
  Receipt Date: 20140324
  Transmission Date: 20141002
  Serious: Yes (Other)
  Sender: FDA-Public Use
  Company Number: IT-SA-2014SA002274

PATIENT
  Age: 83 Year
  Sex: Male

DRUGS (5)
  1. LASIX [Suspect]
     Indication: PRODUCT USED FOR UNKNOWN INDICATION
     Route: 048
     Dates: start: 20130101, end: 20131013
  2. UROREC [Suspect]
     Indication: PRODUCT USED FOR UNKNOWN INDICATION
     Route: 065
     Dates: start: 20130101, end: 20131013
  3. ZANEDIP [Suspect]
     Indication: PRODUCT USED FOR UNKNOWN INDICATION
     Route: 065
     Dates: start: 20130101, end: 20131013
  4. CORDARONE [Concomitant]
     Dosage: STRENGTH: 200 MG
  5. CARDIRENE [Concomitant]
     Dosage: STRENGTH: 75 MG

REACTIONS (2)
  - Syncope [Recovering/Resolving]
  - Dehydration [Recovering/Resolving]
